FAERS Safety Report 4546063-4 (Version None)
Quarter: 2005Q1

REPORT INFORMATION
  Report Type: 
  Country: None (occurrence: None)
  Receive Date: 20050103
  Receipt Date: 20041221
  Transmission Date: 20050727
  Serious: Yes (Hospitalization)
  Sender: FDA-Public Use
  Company Number: 2004UW25949

PATIENT
  Sex: Female

DRUGS (15)
  1. CRESTOR [Suspect]
     Dosage: 20 MG QD PO
     Route: 048
     Dates: start: 20040204, end: 20041119
  2. BUMEX [Suspect]
     Dates: end: 20040501
  3. DEMADEX [Suspect]
     Dosage: 40 MG
     Dates: start: 20040501
  4. TRICOR [Concomitant]
  5. ZETIA [Concomitant]
  6. ZOCOR [Concomitant]
  7. INDERAL LA [Concomitant]
  8. HUMULIN 70/30 [Concomitant]
  9. BUTAMIDE [Concomitant]
  10. POTASSIUM [Concomitant]
  11. LOTREL [Concomitant]
  12. NASONEX [Concomitant]
  13. ZITHROMAX [Concomitant]
  14. LINCOCIN [Concomitant]
  15. FOLTX [Concomitant]

REACTIONS (8)
  - BACK PAIN [None]
  - BLOOD CREATINE PHOSPHOKINASE INCREASED [None]
  - CARDIAC FAILURE CONGESTIVE [None]
  - CONDITION AGGRAVATED [None]
  - MYOGLOBIN BLOOD INCREASED [None]
  - RENAL IMPAIRMENT [None]
  - SINUSITIS [None]
  - TACHYCARDIA [None]
